FAERS Safety Report 8250469-X (Version None)
Quarter: 2012Q2

REPORT INFORMATION
  Report Type: 
  Country: None (occurrence: None)
  Receive Date: 20120402
  Receipt Date: 20120402
  Transmission Date: 20120825
  Serious: No
  Sender: FDA-Public Use
  Company Number: None

PATIENT
  Age: 22 Year
  Sex: Female

DRUGS (1)
  1. LORYNA [Suspect]
     Indication: CONTRACEPTION
     Dates: start: 20120111, end: 20120330

REACTIONS (2)
  - METRORRHAGIA [None]
  - MENORRHAGIA [None]
